FAERS Safety Report 5935578-X (Version None)
Quarter: 2008Q4

REPORT INFORMATION
  Report Type: 
  Country: None (occurrence: None)
  Receive Date: 20081030
  Receipt Date: 20081027
  Transmission Date: 20090506
  Serious: Yes (Hospitalization)
  Sender: FDA-Public Use
  Company Number: A0754170A

PATIENT
  Age: 32 Year
  Sex: Female
  Weight: 65 kg

DRUGS (7)
  1. SERETIDE [Suspect]
     Indication: ASTHMA
     Route: 055
     Dates: start: 20070101, end: 20081022
  2. FLUIR [Suspect]
     Indication: DRUG USE FOR UNKNOWN INDICATION
  3. FORADIL [Concomitant]
     Dates: start: 20071001
  4. BEROTEC [Concomitant]
     Dosage: 7DROP AS REQUIRED
     Dates: start: 19800101
  5. ATROVENT [Concomitant]
     Dosage: 35DROP AS REQUIRED
     Dates: start: 19800101
  6. POLARAMINE [Concomitant]
     Dates: start: 20081022
  7. PREDNISONE TAB [Concomitant]
     Dosage: 2TAB IN THE MORNING
     Dates: start: 20080801, end: 20081023

REACTIONS (28)
  - ABDOMINAL PAIN [None]
  - ANXIETY [None]
  - CHEST DISCOMFORT [None]
  - DIARRHOEA [None]
  - DIZZINESS [None]
  - DRY MOUTH [None]
  - DYSPHAGIA [None]
  - DYSPHONIA [None]
  - DYSPNOEA [None]
  - EAR PAIN [None]
  - FATIGUE [None]
  - FLUSHING [None]
  - HYPERAEMIA [None]
  - HYPERAESTHESIA [None]
  - HYPERHIDROSIS [None]
  - HYPERTHERMIA [None]
  - LOCALISED OEDEMA [None]
  - MUSCLE SPASMS [None]
  - NASOPHARYNGITIS [None]
  - NAUSEA [None]
  - OCULAR HYPERTENSION [None]
  - PARAESTHESIA [None]
  - PERIPHERAL COLDNESS [None]
  - PRESYNCOPE [None]
  - PRURITUS [None]
  - RALES [None]
  - TOOTHACHE [None]
  - TREMOR [None]
